FAERS Safety Report 8333270-8 (Version None)
Quarter: 2012Q2

REPORT INFORMATION
  Report Type: 
  Country: None (occurrence: None)
  Receive Date: 20120503
  Receipt Date: 20120425
  Transmission Date: 20120825
  Serious: Yes (Other)
  Sender: FDA-Public Use
  Company Number: FR-PFIZER INC-2012106758

PATIENT
  Age: 79 Year
  Sex: Female

DRUGS (2)
  1. PREVISCAN [Concomitant]
     Dosage: UNK
  2. CORDARONE [Suspect]
     Indication: ARRHYTHMIA
     Dosage: 200 MG, DAILY
     Route: 048
     Dates: start: 20111201

REACTIONS (2)
  - CEREBELLAR ATAXIA [None]
  - DIZZINESS [None]
